FAERS Safety Report 9644858 (Version 3)
Quarter: 2013Q4

REPORT INFORMATION
  Report Type: Spontaneous
  Country: US (occurrence: US)
  Receive Date: 20131025
  Receipt Date: 20131115
  Transmission Date: 20140711
  Serious: Yes (Death)
  Sender: FDA-Public Use
  Company Number: US-MYLANLABS-2013S1023182

PATIENT
  Age: 51 Year
  Sex: Male
  Weight: 72.58 kg

DRUGS (7)
  1. EMSAM (SELEGILINE TRANSDERMAL SYSTEM) [Suspect]
     Indication: DEPRESSION
     Route: 062
     Dates: start: 20131003, end: 20131009
  2. EMSAM (SELEGILINE TRANSDERMAL SYSTEM) [Suspect]
     Indication: BIPOLAR I DISORDER
     Route: 062
     Dates: start: 20131003, end: 20131009
  3. OXCARBAZEPINE [Suspect]
     Indication: BIPOLAR I DISORDER
     Route: 048
     Dates: start: 20130908, end: 20131009
  4. AMBIEN [Concomitant]
  5. LITHIUM [Concomitant]
     Indication: BIPOLAR I DISORDER
     Route: 048
  6. LATUDA [Concomitant]
     Indication: BIPOLAR I DISORDER
     Route: 048
  7. AMINDAN [Concomitant]
     Indication: BIPOLAR I DISORDER
     Route: 048

REACTIONS (4)
  - Completed suicide [Fatal]
  - Suicidal ideation [Fatal]
  - Drug prescribing error [Fatal]
  - Potentiating drug interaction [Fatal]
